FAERS Safety Report 17792101 (Version 6)
Quarter: 2021Q3

REPORT INFORMATION
  Report Type: Report from Study
  Country: FR (occurrence: FR)
  Receive Date: 20200515
  Receipt Date: 20210827
  Transmission Date: 20211014
  Serious: Yes (Hospitalization)
  Sender: FDA-Public Use
  Company Number: NVSC2020FR121197

PATIENT
  Age: 46 Year
  Sex: Female
  Weight: 87 kg

DRUGS (6)
  1. RIBOCICLIB. [Suspect]
     Active Substance: RIBOCICLIB
     Indication: METASTATIC MALIGNANT MELANOMA
     Dosage: 200 MG, QD
     Route: 048
     Dates: start: 20191105, end: 20200501
  2. PROPANOLOL [Concomitant]
     Active Substance: PROPRANOLOL HYDROCHLORIDE
     Indication: BLOOD PRESSURE INCREASED
     Dosage: UNK
     Route: 065
     Dates: start: 20020101
  3. PARACETAMOL CODEINE [Concomitant]
     Active Substance: ACETAMINOPHEN\CODEINE PHOSPHATE
     Indication: HEADACHE
     Dosage: UNK
     Route: 065
     Dates: start: 20190923
  4. LEVOTHYROXINE. [Concomitant]
     Active Substance: LEVOTHYROXINE
     Indication: PAPILLARY THYROID CANCER
     Dosage: UNK
     Route: 065
     Dates: start: 20150101
  5. PDR001 [Suspect]
     Active Substance: SPARTALIZUMAB
     Indication: METASTATIC MALIGNANT MELANOMA
     Dosage: 400 MG, Q4W
     Route: 042
     Dates: start: 20191105
  6. DIFFU?K [Concomitant]
     Active Substance: POTASSIUM CHLORIDE
     Indication: HYPOKALAEMIA
     Dosage: UNK
     Route: 065
     Dates: start: 20191230

REACTIONS (2)
  - Gastritis [Not Recovered/Not Resolved]
  - Pyrexia [Not Recovered/Not Resolved]

NARRATIVE: CASE EVENT DATE: 20200421
